FAERS Safety Report 19441907 (Version 3)
Quarter: 2021Q3

REPORT INFORMATION
  Report Type: Other
  Country: JP (occurrence: JP)
  Receive Date: 20210621
  Receipt Date: 20210816
  Transmission Date: 20211014
  Serious: Yes (Other)
  Sender: FDA-Public Use
  Company Number: JP-ROCHE-2852727

PATIENT
  Age: 69 Year
  Sex: Male
  Weight: 64.4 kg

DRUGS (4)
  1. BEVACIZUMAB. [Suspect]
     Active Substance: BEVACIZUMAB
     Indication: LUNG ADENOCARCINOMA
     Dosage: MOST RECENT DOSE RECEIVED PRIOR TO THE EVENT ONSET ON 30/MAR/2021
     Route: 041
     Dates: start: 20210330
  2. PACLITAXEL. [Concomitant]
     Active Substance: PACLITAXEL
     Indication: LUNG ADENOCARCINOMA
     Route: 041
     Dates: start: 20210330, end: 20210330
  3. ATEZOLIZUMAB. [Suspect]
     Active Substance: ATEZOLIZUMAB
     Indication: LUNG ADENOCARCINOMA
     Dosage: MOST RECENT DOSE RECEIVED PRIOR TO THE EVENT ONSET ON 30/MAR/2021
     Route: 041
     Dates: start: 20210330
  4. CARBOPLATIN. [Concomitant]
     Active Substance: CARBOPLATIN
     Indication: LUNG ADENOCARCINOMA
     Route: 041
     Dates: start: 20210330, end: 20210330

REACTIONS (3)
  - Pulmonary artery thrombosis [Recovered/Resolved]
  - Venous thrombosis limb [Recovered/Resolved]
  - Interstitial lung disease [Recovering/Resolving]

NARRATIVE: CASE EVENT DATE: 20210406
